FAERS Safety Report 22297014 (Version 2)
Quarter: 2023Q2

REPORT INFORMATION
  Report Type: Spontaneous
  Country: IT (occurrence: IT)
  Receive Date: 20230509
  Receipt Date: 20230614
  Transmission Date: 20230721
  Serious: Yes (Hospitalization)
  Sender: FDA-Public Use
  Company Number: None

PATIENT
  Age: 42 Year
  Sex: Female
  Weight: 60 kg

DRUGS (2)
  1. KESIMPTA [Suspect]
     Active Substance: OFATUMUMAB
     Indication: Relapsing-remitting multiple sclerosis
     Dosage: 20 MG (LA DOSE RACCOMANDATA E 20 MG DI OFATUMUMAB DA SOMMINISTRARE TRAMITE INIEZIONE SOTTOCUTANEA CO
     Route: 058
     Dates: start: 20230113, end: 20230310
  2. RIFADIN [Concomitant]
     Active Substance: RIFAMPIN
     Indication: Tuberculosis
     Dosage: 300 MG (600 MILLIGRAMMI/DIE)
     Route: 048

REACTIONS (1)
  - Basal ganglia stroke [Recovering/Resolving]

NARRATIVE: CASE EVENT DATE: 20230407
